FAERS Safety Report 17249218 (Version 4)
Quarter: 2020Q4

REPORT INFORMATION
  Report Type: Report from Study
  Country: US (occurrence: US)
  Receive Date: 20200108
  Receipt Date: 20201028
  Transmission Date: 20210113
  Serious: Yes (Hospitalization)
  Sender: FDA-Public Use
  Company Number: US-PFIZER INC-2020000579

PATIENT
  Age: 71 Year
  Sex: Female
  Weight: 78.1 kg

DRUGS (2)
  1. TALAZOPARIB. [Suspect]
     Active Substance: TALAZOPARIB
     Indication: UTERINE LEIOMYOSARCOMA
     Dosage: 1 MG, 1X/DAY
     Route: 048
     Dates: start: 20190415, end: 20191231
  2. AVELUMAB [Suspect]
     Active Substance: AVELUMAB
     Indication: UTERINE LEIOMYOSARCOMA
     Dosage: 800 MG, DAY 1 AND DAY 15 OF EACH 28 DAY CYCLE
     Route: 041
     Dates: start: 20190415

REACTIONS (1)
  - Febrile neutropenia [Recovered/Resolved]

NARRATIVE: CASE EVENT DATE: 20191231
